FAERS Safety Report 7950717-7 (Version None)
Quarter: 2011Q4

REPORT INFORMATION
  Report Type: 
  Country: None (occurrence: None)
  Receive Date: 20111201
  Receipt Date: 20111117
  Transmission Date: 20120403
  Serious: Yes (Hospitalization)
  Sender: FDA-Public Use
  Company Number: DE-RANBAXY-2009RR-23446

PATIENT
  Age: 80 Year
  Sex: Male
  Weight: 80 kg

DRUGS (8)
  1. ARCOXIA [Suspect]
     Indication: OSTEOLYSIS
     Dosage: 90 MG, QD
     Route: 048
     Dates: start: 20080601, end: 20080705
  2. BISOPROLOL FUMARATE [Concomitant]
     Indication: HYPERTENSION
     Dosage: 5 MG, BID
     Route: 048
     Dates: start: 19970101
  3. SIMVASTATIN [Concomitant]
     Indication: HYPERPROLACTINAEMIA
     Dosage: 20 MG, QD
     Route: 048
     Dates: start: 19970101
  4. ENALAPRIL MALEATE [Suspect]
     Indication: HYPERTENSION
     Dosage: 10 MG, BID
     Route: 048
     Dates: start: 19970101, end: 20080705
  5. TRIAMTERENE AND HYDROCHLOROTHIAZIDE [Suspect]
     Indication: HYPERTENSION
     Dosage: 1 DF, QD
     Route: 048
     Dates: start: 20040101, end: 20080705
  6. FALITHROM ^HEXAL^ [Concomitant]
     Indication: ATRIAL FIBRILLATION
     Dosage: UNK
     Route: 048
     Dates: start: 20040101, end: 20080704
  7. ISOSORBIDE DINITRATE [Concomitant]
     Indication: ATRIAL FIBRILLATION
     Dosage: 120 MG, QD
     Route: 048
     Dates: start: 19970101
  8. PK-MERZ [Concomitant]
     Indication: PARKINSON'S DISEASE
     Dosage: 50 MG, BID
     Route: 048

REACTIONS (2)
  - RENAL FAILURE ACUTE [None]
  - DRUG INTERACTION [None]
